FAERS Safety Report 13473084 (Version 1)
Quarter: 2017Q2

REPORT INFORMATION
  Report Type: Report from Study
  Country: US (occurrence: US)
  Receive Date: 20170424
  Receipt Date: 20170424
  Transmission Date: 20170830
  Serious: Yes (Hospitalization)
  Sender: FDA-Public Use
  Company Number: US-GILEAD-2017-0268584

PATIENT
  Age: 47 Year
  Sex: Female

DRUGS (4)
  1. SPIRONOLACTONE. [Concomitant]
     Active Substance: SPIRONOLACTONE
  2. FUROSEMIDE. [Concomitant]
     Active Substance: FUROSEMIDE
  3. AMBRISENTAN [Suspect]
     Active Substance: AMBRISENTAN
     Indication: PULMONARY ARTERIAL HYPERTENSION
     Dosage: 10 MG, QD
     Route: 065
     Dates: start: 20130116
  4. FERROUS FUMARATE [Concomitant]
     Active Substance: FERROUS FUMARATE

REACTIONS (2)
  - Cardiac disorder [Unknown]
  - Drug dose omission [Unknown]
